FAERS Safety Report 17195799 (Version 1)
Quarter: 2019Q4

REPORT INFORMATION
  Report Type: Spontaneous
  Country: US (occurrence: US)
  Receive Date: 20191202
  Receipt Date: 20191202
  Transmission Date: 20200122
  Serious: Yes (Hospitalization)
  Sender: FDA-Public Use
  Company Number: None

PATIENT
  Age: 66 Year
  Sex: Female
  Weight: 90.08 kg

DRUGS (3)
  1. AMLODIPINE [Concomitant]
     Active Substance: AMLODIPINE BESYLATE
  2. HYDRALAZINE [Concomitant]
     Active Substance: HYDRALAZINE HYDROCHLORIDE
  3. ATORVASTATIN 80MG [Suspect]
     Active Substance: ATORVASTATIN
     Indication: DYSLIPIDAEMIA
     Route: 048
     Dates: start: 20191008, end: 20191023

REACTIONS (7)
  - Cholecystectomy [None]
  - Alanine aminotransferase increased [None]
  - Pruritus [None]
  - Aspartate aminotransferase increased [None]
  - Arthralgia [None]
  - Myalgia [None]
  - Hyperbilirubinaemia [None]

NARRATIVE: CASE EVENT DATE: 20191023
